FAERS Safety Report 10235011 (Version 9)
Quarter: 2016Q1

REPORT INFORMATION
  Report Type: Report from Study
  Country: US (occurrence: US)
  Receive Date: 20140613
  Receipt Date: 20160217
  Transmission Date: 20160525
  Serious: Yes (Disabling, Other)
  Sender: FDA-Public Use
  Company Number: PHHY2013US099694

PATIENT
  Age: 59 Year
  Sex: Female
  Weight: 65.76 kg

DRUGS (2)
  1. MULTI-VIT [Concomitant]
     Active Substance: VITAMINS
     Indication: PRODUCT USED FOR UNKNOWN INDICATION
     Route: 065
  2. GILENYA [Suspect]
     Active Substance: FINGOLIMOD HYDROCHLORIDE
     Indication: MULTIPLE SCLEROSIS
     Dosage: 0.5 MG, QD
     Route: 048
     Dates: start: 20121208

REACTIONS (7)
  - Gait disturbance [Unknown]
  - Normal pressure hydrocephalus [Not Recovered/Not Resolved]
  - Mobility decreased [Unknown]
  - Asthenia [Unknown]
  - Quadriparesis [Recovering/Resolving]
  - Cerebral atrophy [Not Recovered/Not Resolved]
  - Cognitive disorder [Unknown]

NARRATIVE: CASE EVENT DATE: 20130221
